FAERS Safety Report 8373842-8 (Version None)
Quarter: 2012Q2

REPORT INFORMATION
  Report Type: 
  Country: None (occurrence: None)
  Receive Date: 20120521
  Receipt Date: 20120509
  Transmission Date: 20120825
  Serious: Yes (Hospitalization)
  Sender: FDA-Public Use
  Company Number: US-ACTELION-A-US2011-48049

PATIENT

DRUGS (6)
  1. TYVASO [Concomitant]
  2. TRACLEER [Suspect]
     Indication: PULMONARY ARTERIAL HYPERTENSION
     Dosage: UNK
     Route: 048
     Dates: start: 20070713
  3. SILDENAFIL [Concomitant]
  4. REVATIO [Concomitant]
  5. OXYGEN [Concomitant]
  6. ASPIRIN [Concomitant]

REACTIONS (8)
  - OROPHARYNGEAL PAIN [None]
  - PANIC ATTACK [None]
  - INFLUENZA [None]
  - MALAISE [None]
  - PRODUCTIVE COUGH [None]
  - PYREXIA [None]
  - FALL [None]
  - DEPRESSION [None]
